FAERS Safety Report 5779667-1 (Version None)
Quarter: 2008Q2

REPORT INFORMATION
  Report Type: 
  Country: None (occurrence: None)
  Receive Date: 20080601
  Receipt Date: 20080312
  Transmission Date: 20081010
  Serious: No
  Sender: FDA-Public Use
  Company Number: US200803002929

PATIENT
  Age: 76 Year
  Sex: Female
  Weight: 79.4 kg

DRUGS (6)
  1. BYETTA [Suspect]
     Indication: TYPE 2 DIABETES MELLITUS
     Dosage: 5 UG, 2/D, SUBCUTANEOUS
     Route: 058
     Dates: start: 20070101
  2. METFORMIN HCL [Concomitant]
  3. PRILOSEC [Concomitant]
  4. HUMULIN N [Concomitant]
  5. HUMALOG [Concomitant]
  6. EXENATIDE 5MCG PEN, DISPOSABLE DEVICE (EXENATIDE PEN (5MCG)) PEN,DISPO [Concomitant]

REACTIONS (6)
  - COUGH [None]
  - DYSGEUSIA [None]
  - NASAL CONGESTION [None]
  - NAUSEA [None]
  - VOMITING [None]
  - WEIGHT DECREASED [None]
